FAERS Safety Report 5865784-4 (Version None)
Quarter: 2008Q3

REPORT INFORMATION
  Report Type: 
  Country: None (occurrence: None)
  Receive Date: 20080829
  Receipt Date: 20080827
  Transmission Date: 20090109
  Serious: Yes (Death)
  Sender: FDA-Public Use
  Company Number: PHBS2008NL05541

PATIENT
  Age: 75 Year

DRUGS (2)
  1. DICLOFENAC [Suspect]
     Indication: GOUT
     Route: 065
  2. METFORMIN HCL [Suspect]
     Route: 065

REACTIONS (8)
  - ANOREXIA [None]
  - BLOOD CREATININE INCREASED [None]
  - BLOOD POTASSIUM INCREASED [None]
  - BLOOD UREA INCREASED [None]
  - CONFUSIONAL STATE [None]
  - DRUG TOXICITY [None]
  - LACTIC ACIDOSIS [None]
  - RENAL FAILURE ACUTE [None]
